FAERS Safety Report 17218086 (Version 1)
Quarter: 2019Q4

REPORT INFORMATION
  Report Type: Spontaneous
  Country: CN (occurrence: CN)
  Receive Date: 20191231
  Receipt Date: 20191231
  Transmission Date: 20200122
  Serious: Yes (Hospitalization, Other)
  Sender: FDA-Public Use
  Company Number: CN-ASTRAZENECA-2019SF86602

PATIENT
  Age: 63 Year
  Sex: Male

DRUGS (4)
  1. LIPITOR [Concomitant]
     Active Substance: ATORVASTATIN CALCIUM
  2. CRESTOR [Suspect]
     Active Substance: ROSUVASTATIN CALCIUM
     Indication: POSTOPERATIVE CARE
     Route: 048
     Dates: start: 20190830, end: 2019
  3. INTERLEUKIN [Concomitant]
     Active Substance: INTERLEUKIN NOS
     Indication: PLATELET COUNT DECREASED
     Dates: start: 201910
  4. CRESTOR [Suspect]
     Active Substance: ROSUVASTATIN CALCIUM
     Indication: LIPIDS INCREASED
     Route: 048
     Dates: start: 20190830, end: 2019

REACTIONS (2)
  - Thrombocytopenia [Recovering/Resolving]
  - Hypoaesthesia [Recovered/Resolved]

NARRATIVE: CASE EVENT DATE: 201910
